FAERS Safety Report 9008178 (Version 2)
Quarter: 2013Q1

REPORT INFORMATION
  Report Type: Spontaneous
  Country: US (occurrence: US)
  Receive Date: 20130111
  Receipt Date: 20130205
  Transmission Date: 20140127
  Serious: Yes (Other)
  Sender: FDA-Public Use
  Company Number: US-ASTELLAS-2013US000294

PATIENT
  Age: 48 Year
  Sex: Male

DRUGS (3)
  1. PROGRAF [Suspect]
     Indication: RENAL TRANSPLANT
     Dosage: 2 MG, BID
     Route: 048
     Dates: start: 20091010
  2. PROGRAF [Suspect]
     Dosage: 2 MG IN THE MORNING, 1 MG IN THE EVENING
     Route: 048
  3. CELLCEPT                           /01275102/ [Concomitant]
     Indication: TRANSPLANT
     Dosage: 750 MG, BID
     Route: 065

REACTIONS (2)
  - Hypertension [Unknown]
  - Cardiac murmur [Unknown]
